FAERS Safety Report 8130667 (Version 9)
Quarter: 2015Q1

REPORT INFORMATION
  Report Type: Spontaneous
  Country: US (occurrence: US)
  Receive Date: 20110912
  Receipt Date: 20150109
  Transmission Date: 20150721
  Serious: Yes (Life-Threatening, Hospitalization, Other)
  Sender: FDA-Public Use
  Company Number: US-JNJFOC-20110902986

PATIENT
  Age: 4 Year
  Sex: Male
  Weight: 16.4 kg

DRUGS (4)
  1. MOTRIN [Suspect]
     Active Substance: IBUPROFEN
     Indication: PYREXIA
     Dates: start: 200909, end: 20090927
  2. GAVISCON [Suspect]
     Active Substance: ALUMINUM HYDROXIDE\MAGNESIUM CARBONATE
     Indication: ABDOMINAL DISCOMFORT
     Dates: start: 200909
  3. TYLENOL [Suspect]
     Active Substance: ACETAMINOPHEN
     Indication: ANALGESIC THERAPY
     Dosage: 2 TABLESPOONS 3 TIMES PER DAY FOR 2 DAYS IN A ROW
     Dates: start: 200909, end: 20090927
  4. TYLENOL [Suspect]
     Active Substance: ACETAMINOPHEN
     Indication: PYREXIA
     Dosage: 2 TABLESPOONS 3 TIMES PER DAY FOR 2 DAYS IN A ROW
     Dates: start: 200909, end: 20090927

REACTIONS (7)
  - H1N1 influenza [Recovered/Resolved]
  - Nosocomial infection [Unknown]
  - Acute hepatic failure [Recovered/Resolved]
  - Encephalopathy [Recovered/Resolved]
  - Pneumonia [Recovered/Resolved]
  - Streptococcal bacteraemia [Recovered/Resolved]
  - Incorrect dose administered [Unknown]

NARRATIVE: CASE EVENT DATE: 200909
